FAERS Safety Report 5730343-0 (Version None)
Quarter: 2008Q2

REPORT INFORMATION
  Report Type: 
  Country: None (occurrence: None)
  Receive Date: 20080502
  Receipt Date: 20080422
  Transmission Date: 20081010
  Serious: Yes (Hospitalization)
  Sender: FDA-Public Use
  Company Number: 2008AL002503

PATIENT
  Age: 22 Year
  Sex: Female

DRUGS (10)
  1. DIAZEPAM [Suspect]
     Dosage: PO
     Route: 048
     Dates: start: 20071226, end: 20080204
  2. HALOPERIDOL [Concomitant]
  3. NOZINAN [Concomitant]
  4. TERCIAN [Concomitant]
  5. LEPTICUR [Concomitant]
  6. TERALITHE [Concomitant]
  7. NOCTAMID [Concomitant]
  8. LOXAPINE HCL [Concomitant]
  9. RIVOTRIL [Concomitant]
  10. CLOZAPINE [Concomitant]

REACTIONS (1)
  - HEPATITIS CHOLESTATIC [None]
